FAERS Safety Report 8577695-4 (Version None)
Quarter: 2012Q3

REPORT INFORMATION
  Report Type: 
  Country: None (occurrence: None)
  Receive Date: 20120808
  Receipt Date: 20120727
  Transmission Date: 20120928
  Serious: Yes (Other)
  Sender: FDA-Public Use
  Company Number: BR-AMGEN-BRACT2012001534

PATIENT
  Age: 50 Year
  Sex: Female
  Weight: 45 kg

DRUGS (5)
  1. METICORTEN [Concomitant]
     Dosage: UNK
  2. ENBREL [Suspect]
     Indication: RHEUMATOID ARTHRITIS
     Dosage: 50 MG, QWK
     Route: 058
  3. VITACAL                            /01535001/ [Concomitant]
     Dosage: UNK
  4. PIROXICAM [Concomitant]
     Dosage: UNK
  5. LABIRIN [Concomitant]
     Dosage: UNK

REACTIONS (3)
  - DRUG INEFFECTIVE [None]
  - INJECTION SITE PAIN [None]
  - CHONDROPATHY [None]
